FAERS Safety Report 20891690 (Version 4)
Quarter: 2022Q4

REPORT INFORMATION
  Report Type: Report from Study
  Country: US (occurrence: US)
  Receive Date: 20220530
  Receipt Date: 20221108
  Transmission Date: 20230112
  Serious: Yes (Other)
  Sender: FDA-Public Use
  Company Number: US-BRISTOL-MYERS SQUIBB COMPANY-2022-029922

PATIENT
  Age: 64 Year
  Sex: Male
  Weight: 117.93 kg

DRUGS (4)
  1. POMALYST [Suspect]
     Active Substance: POMALIDOMIDE
     Indication: Plasma cell myeloma
     Dosage: FREQUENCY: 21 OF 28 DAYS
     Route: 048
     Dates: start: 20211007
  2. POMALYST [Suspect]
     Active Substance: POMALIDOMIDE
     Indication: Plasma cell myeloma
     Dosage: ONCE A DAY FOR 21 DAYS ON DAY 1 THROUGH 21 FOLLOWED BY 7 DAYS REST EVERY 28DAY CHEMOTHERAPY CYCLE.?L
     Route: 048
  3. POMALYST [Suspect]
     Active Substance: POMALIDOMIDE
     Indication: Plasma cell myeloma refractory
     Dosage: DAILY 21 DAYS THEN 7 DAYS OFF EVERY 28 DAYS
     Route: 048
     Dates: start: 20211007
  4. REVLIMID [Concomitant]
     Active Substance: LENALIDOMIDE

REACTIONS (8)
  - Clavicle fracture [Unknown]
  - Diverticulitis [Unknown]
  - Drug ineffective [Unknown]
  - Pathological fracture [Unknown]
  - Pneumonia [Unknown]
  - Escherichia infection [Unknown]
  - COVID-19 [Unknown]
  - Skin lesion [Unknown]

NARRATIVE: CASE EVENT DATE: 20220923
